FAERS Safety Report 7735187-6 (Version None)
Quarter: 2011Q3

REPORT INFORMATION
  Report Type: 
  Country: None (occurrence: None)
  Receive Date: 20110907
  Receipt Date: 20110902
  Transmission Date: 20111222
  Serious: Yes (Hospitalization, Other)
  Sender: FDA-Public Use
  Company Number: US-PFIZER INC-2011145097

PATIENT
  Sex: Female

DRUGS (8)
  1. AMITRIPTYLINE [Concomitant]
     Indication: DEPRESSION
     Dosage: UNK
     Dates: start: 20030101
  2. PREVACID [Concomitant]
     Indication: GASTROOESOPHAGEAL REFLUX DISEASE
     Dosage: UNK
     Dates: start: 20030101
  3. CELEBREX [Concomitant]
     Indication: ARTHRALGIA
     Dosage: UNK
     Dates: start: 20030101
  4. DIAZEPAM [Concomitant]
     Indication: ANXIETY
     Dosage: UNK
     Dates: start: 20050501
  5. CHANTIX [Suspect]
     Indication: SMOKING CESSATION THERAPY
     Dosage: 1 MG, UNK
     Dates: start: 20080220, end: 20080501
  6. FERROUS SULFATE [Concomitant]
     Indication: ANAEMIA
     Dosage: UNK
     Dates: start: 20030101
  7. LORTAB [Concomitant]
     Indication: PAIN
     Dosage: UNK
     Dates: start: 20030101
  8. PROMETHAZINE [Concomitant]
     Indication: HYPERSENSITIVITY
     Dosage: UNK
     Dates: start: 20030101

REACTIONS (9)
  - INTENTIONAL OVERDOSE [None]
  - AGGRESSION [None]
  - MENTAL DISORDER [None]
  - EMOTIONAL DISTRESS [None]
  - DEPRESSION [None]
  - ABNORMAL BEHAVIOUR [None]
  - IMPAIRED DRIVING ABILITY [None]
  - SUICIDE ATTEMPT [None]
  - ANXIETY [None]
